FAERS Safety Report 10694853 (Version 1)
Quarter: 2015Q1

REPORT INFORMATION
  Report Type: Spontaneous
  Country: US (occurrence: None)
  Receive Date: 20150105
  Receipt Date: 20150105
  Transmission Date: 20150721
  Serious: Yes (Hospitalization, Disabling, Other)
  Sender: FDA-Public Use
  Company Number: None

PATIENT
  Age: 41 Year
  Sex: Female
  Weight: 64.41 kg

DRUGS (4)
  1. NERATINIB [Concomitant]
     Active Substance: NERATINIB
  2. XELODA [Concomitant]
     Active Substance: CAPECITABINE
  3. KADCYLA [Suspect]
     Active Substance: ADO-TRASTUZUMAB EMTANSINE
     Indication: HER-2 POSITIVE BREAST CANCER
     Dosage: 1 BAG EVERY 21 DAYS ONLY HAD 3 TX. INFUSION (IV)
     Route: 042
     Dates: start: 20140821, end: 20140927
  4. IMODIUM [Concomitant]
     Active Substance: LOPERAMIDE HYDROCHLORIDE

REACTIONS (5)
  - Cough [None]
  - Malaise [None]
  - Dysphonia [None]
  - Asthenia [None]
  - Alopecia [None]

NARRATIVE: CASE EVENT DATE: 201408
